FAERS Safety Report 14437037 (Version 1)
Quarter: 2018Q1

REPORT INFORMATION
  Report Type: Spontaneous
  Country: JP (occurrence: JP)
  Receive Date: 20180125
  Receipt Date: 20180125
  Transmission Date: 20180509
  Serious: Yes (Other)
  Sender: FDA-Public Use
  Company Number: JP-BAYER-2018-010282

PATIENT
  Sex: Female

DRUGS (1)
  1. BETAFERON [Suspect]
     Active Substance: INTERFERON BETA-1B
     Indication: MULTIPLE SCLEROSIS
     Route: 058

REACTIONS (8)
  - Nasal discharge discolouration [None]
  - Surgery [None]
  - Nasal congestion [None]
  - Streptococcal infection [None]
  - Pyrexia [None]
  - Oropharyngeal pain [None]
  - Rhinorrhoea [None]
  - Sputum discoloured [None]

NARRATIVE: CASE EVENT DATE: 20180106
